FAERS Safety Report 14141135 (Version 1)
Quarter: 2017Q4

REPORT INFORMATION
  Report Type: Spontaneous
  Country: US (occurrence: None)
  Receive Date: 20171028
  Receipt Date: 20171028
  Transmission Date: 20180321
  Serious: Yes (Hospitalization)
  Sender: FDA-Public Use
  Company Number: None

PATIENT
  Age: 72 Year
  Sex: Male
  Weight: 95 kg

DRUGS (9)
  1. MULTIVITAMIN WITH MINERALS [Concomitant]
     Active Substance: MINERALS\VITAMINS
  2. OMEPRAZOLE. [Concomitant]
     Active Substance: OMEPRAZOLE
  3. ZOLPIDEM [Concomitant]
     Active Substance: ZOLPIDEM\ZOLPIDEM TARTRATE
  4. BACTRIM [Concomitant]
     Active Substance: SULFAMETHOXAZOLE\TRIMETHOPRIM
  5. MIRALAX [Concomitant]
     Active Substance: POLYETHYLENE GLYCOL 3350
  6. TEMOZOLOMIDE. [Concomitant]
     Active Substance: TEMOZOLOMIDE
  7. SIMVASTATIN. [Concomitant]
     Active Substance: SIMVASTATIN
  8. OPTUNE [Concomitant]
     Active Substance: DEVICE
  9. NUVIGIL [Suspect]
     Active Substance: ARMODAFINIL
     Dates: end: 20171017

REACTIONS (10)
  - Sepsis [None]
  - Glioma [None]
  - Hyperhidrosis [None]
  - Hypotension [None]
  - Disease progression [None]
  - Asthenia [None]
  - Pulmonary embolism [None]
  - Pallor [None]
  - Fall [None]
  - Deep vein thrombosis [None]

NARRATIVE: CASE EVENT DATE: 20171025
